FAERS Safety Report 4470526-3 (Version None)
Quarter: 2004Q4

REPORT INFORMATION
  Report Type: 
  Country: None (occurrence: None)
  Receive Date: 20041005
  Receipt Date: 20041005
  Transmission Date: 20050328
  Serious: Yes (Hospitalization)
  Sender: FDA-Public Use
  Company Number: None

PATIENT
  Sex: Male

DRUGS (12)
  1. DIGOXIN [Suspect]
     Indication: ATRIAL FIBRILLATION
     Dosage: 0.125 MG DAILY ORAL
     Route: 048
  2. ALBUTEROL [Concomitant]
  3. APAP TAB [Concomitant]
  4. CLOPIDOGREL [Concomitant]
  5. FELODIPINE [Concomitant]
  6. FLUNISOLIDE ORAL INHALER [Concomitant]
  7. FUROSEMIDE [Concomitant]
  8. GLYBURIDE [Concomitant]
  9. IPRATROPIUM BROMIDE [Concomitant]
  10. ISOSORBIDE MONONITRATE [Concomitant]
  11. SIMVASTATIN [Concomitant]
  12. TEMAZEPAM [Concomitant]

REACTIONS (3)
  - DIZZINESS [None]
  - NAUSEA [None]
  - VOMITING [None]
